FAERS Safety Report 5723237-8 (Version None)
Quarter: 2008Q2

REPORT INFORMATION
  Report Type: 
  Country: None (occurrence: None)
  Receive Date: 20080430
  Receipt Date: 20080225
  Transmission Date: 20081010
  Serious: No
  Sender: FDA-Public Use
  Company Number: US-ASTRAZENECA-2008UW03947

PATIENT
  Age: 77 Year
  Sex: Female
  Weight: 64.9 kg

DRUGS (6)
  1. NEXIUM [Suspect]
     Indication: GASTROOESOPHAGEAL REFLUX DISEASE
     Route: 048
  2. MECLIZINE [Concomitant]
  3. HYDROCHLOROTHIAZIDE [Concomitant]
  4. ALLEGRA [Concomitant]
  5. MELATONIN [Concomitant]
  6. TYLENOL PM [Concomitant]

REACTIONS (2)
  - INSOMNIA [None]
  - MUSCULOSKELETAL DISCOMFORT [None]
